FAERS Safety Report 8801194 (Version 1)
Quarter: 2012Q4

REPORT INFORMATION
  Report Type: Report from Study
  Country: CA (occurrence: CA)
  Receive Date: 20120921
  Receipt Date: 20120921
  Transmission Date: 20130627
  Serious: Yes (Other)
  Sender: FDA-Public Use
  Company Number: CA-ROCHE-1133826

PATIENT
  Age: 75 None
  Sex: Female
  Weight: 47 kg

DRUGS (8)
  1. ROACTEMRA [Suspect]
     Indication: RHEUMATOID ARTHRITIS
     Route: 042
     Dates: start: 20110928
  2. ROACTEMRA [Suspect]
     Dosage: DOSE RUDUCED
     Route: 065
     Dates: start: 20120619
  3. METHOTREXATE [Concomitant]
  4. COUMADIN [Concomitant]
  5. METOPROLOL [Concomitant]
  6. TRAMACET [Concomitant]
  7. CLONAZEPAM [Concomitant]
  8. OMEGA 3 [Concomitant]

REACTIONS (2)
  - Knee operation [Unknown]
  - Weight decreased [Unknown]
